FAERS Safety Report 4636413-2 (Version None)
Quarter: 2005Q2

REPORT INFORMATION
  Report Type: 
  Country: None (occurrence: None)
  Receive Date: 20050413
  Receipt Date: 20050413
  Transmission Date: 20051028
  Serious: Yes (Hospitalization)
  Sender: FDA-Public Use
  Company Number: None

PATIENT
  Age: 50 Year
  Sex: Male
  Weight: 92.9874 kg

DRUGS (1)
  1. ACAMPROSATE    333 MG [Suspect]
     Dosage: 2 TAB    TID   ORAL
     Route: 048
     Dates: start: 20050404, end: 20050405

REACTIONS (4)
  - CONDITION AGGRAVATED [None]
  - HEPATIC ENCEPHALOPATHY [None]
  - MUSCLE TWITCHING [None]
  - SPEECH DISORDER [None]
